FAERS Safety Report 5844194-X (Version None)
Quarter: 2008Q3

REPORT INFORMATION
  Report Type: 
  Country: None (occurrence: None)
  Receive Date: 20080813
  Receipt Date: 20080804
  Transmission Date: 20090109
  Serious: Yes (Other)
  Sender: FDA-Public Use
  Company Number: US-PFIZER INC-2008065013

PATIENT
  Sex: Female

DRUGS (2)
  1. ZITHROMAX [Suspect]
     Indication: UPPER RESPIRATORY TRACT INFECTION
     Dosage: DAILY DOSE:5MG
     Route: 048
  2. KEPPRA [Suspect]
     Indication: CONVULSION
     Dosage: DAILY DOSE:2.5ML
     Route: 048

REACTIONS (1)
  - RESPIRATORY DEPRESSION [None]
